FAERS Safety Report 14551481 (Version 1)
Quarter: 2018Q1

REPORT INFORMATION
  Report Type: Spontaneous
  Country: JP (occurrence: JP)
  Receive Date: 20180220
  Receipt Date: 20180220
  Transmission Date: 20180509
  Serious: Yes (Disabling)
  Sender: FDA-Public Use
  Company Number: JP-CONCORDIA PHARMACEUTICALS INC.-E2B_00009862

PATIENT
  Age: 18 Year
  Sex: Male

DRUGS (2)
  1. ZONISAMIDE. [Suspect]
     Active Substance: ZONISAMIDE
     Indication: EPILEPSY
     Route: 048
  2. E KEPPRA [Concomitant]
     Active Substance: LEVETIRACETAM
     Indication: PRODUCT USED FOR UNKNOWN INDICATION
     Dosage: UNKNOWN
     Route: 065

REACTIONS (1)
  - Visual acuity reduced [Not Recovered/Not Resolved]
